FAERS Safety Report 5375598-X (Version None)
Quarter: 2007Q2

REPORT INFORMATION
  Report Type: 
  Country: None (occurrence: None)
  Receive Date: 20070627
  Receipt Date: 20070613
  Transmission Date: 20071010
  Serious: Yes (Life-Threatening, Hospitalization)
  Sender: FDA-Public Use
  Company Number: DSA_30117_2007

PATIENT
  Age: 25 Year
  Sex: Female

DRUGS (5)
  1. TAVOR /00273201/ (TAVOR) 1 MG [Suspect]
     Dosage: (75 MG 1X ORAL)
     Route: 048
     Dates: start: 20070613, end: 20070613
  2. ACETYLSALICYLIC ACID (ACETYLSALICYLIC ACID) 500 MG [Suspect]
     Dosage: (10000 MG 1X ORAL)
     Route: 048
     Dates: start: 20070613, end: 20070613
  3. CARBAMAZEPINE [Suspect]
     Dosage: (2000 MG 1X ORAL)
     Route: 048
     Dates: start: 20070613, end: 20070613
  4. CARBAMAZEPINE [Suspect]
     Dosage: (16000 MG 1X ORAL)
     Route: 048
     Dates: start: 20070613, end: 20070613
  5. ZYPREXA [Suspect]
     Dosage: (210 MG 1X ORAL)
     Route: 048
     Dates: start: 20070613, end: 20070613

REACTIONS (5)
  - HYPOGLYCAEMIA [None]
  - MULTIPLE DRUG OVERDOSE [None]
  - SOMNOLENCE [None]
  - SUICIDE ATTEMPT [None]
  - TACHYCARDIA [None]
